FAERS Safety Report 22590674 (Version 1)
Quarter: 2023Q2

REPORT INFORMATION
  Report Type: Spontaneous
  Country: US (occurrence: None)
  Receive Date: 20230609
  Receipt Date: 20230609
  Transmission Date: 20230721
  Serious: Yes (Other)
  Sender: FDA-Public Use
  Company Number: None

PATIENT
  Sex: Female

DRUGS (1)
  1. PROCRIT [Suspect]
     Active Substance: ERYTHROPOIETIN
     Indication: Myelofibrosis
     Dosage: OTHER QUANTITY : 40,000 UNITS;?OTHER FREQUENCY : OTHER;?
     Route: 058

REACTIONS (1)
  - Thyroid operation [None]
